FAERS Safety Report 25828309 (Version 1)
Quarter: 2025Q3

REPORT INFORMATION
  Report Type: Report from Study
  Country: CA (occurrence: CA)
  Receive Date: 20250921
  Receipt Date: 20250921
  Transmission Date: 20251021
  Serious: Yes (Other)
  Sender: ABBVIE
  Company Number: CA-ABBVIE-6466555

PATIENT
  Age: 60 Year
  Sex: Female

DRUGS (1)
  1. RINVOQ [Suspect]
     Active Substance: UPADACITINIB
     Indication: Psoriatic arthropathy
     Dosage: FORM STRENGTH: 15  MG
     Route: 048

REACTIONS (3)
  - Limb operation [Recovering/Resolving]
  - Post procedural complication [Recovering/Resolving]
  - Onycholysis [Recovering/Resolving]

NARRATIVE: CASE EVENT DATE: 20250101
